FAERS Safety Report 13807098 (Version 2)
Quarter: 2017Q3

REPORT INFORMATION
  Report Type: Spontaneous
  Country: US (occurrence: US)
  Receive Date: 20170728
  Receipt Date: 20170920
  Transmission Date: 20171127
  Serious: Yes (Other)
  Sender: FDA-Public Use
  Company Number: US-009507513-1707USA011917

PATIENT

DRUGS (4)
  1. HEXADROL [Suspect]
     Active Substance: DEXAMETHASONE
     Dosage: 4 MG, QID
     Route: 042
  2. HYDROCORTONE [Suspect]
     Active Substance: HYDROCORTISONE
     Indication: MENINGITIS COCCIDIOIDES
     Dosage: 50 MG, Q6H
  3. HEXADROL [Suspect]
     Active Substance: DEXAMETHASONE
     Indication: MENINGITIS COCCIDIOIDES
     Dosage: BETWEEN 8 AND 40 MG/DAY FOR 10-21 DAYS
     Route: 042
  4. HEXADROL [Suspect]
     Active Substance: DEXAMETHASONE
     Dosage: 10 MG, ONCE
     Route: 042

REACTIONS (1)
  - Osteonecrosis [Recovered/Resolved]
